FAERS Safety Report 4687674-5 (Version None)
Quarter: 2005Q2

REPORT INFORMATION
  Report Type: 
  Country: None (occurrence: None)
  Receive Date: 20050608
  Receipt Date: 20050608
  Transmission Date: 20051028
  Serious: Yes (Other)
  Sender: FDA-Public Use
  Company Number: None

PATIENT
  Sex: Female
  Weight: 251.7463 kg

DRUGS (6)
  1. WARFARIN [Suspect]
     Indication: PULMONARY EMBOLISM
     Dosage: 7.5 ALT 10MG DAILY ORAL
     Route: 048
     Dates: start: 20010801, end: 20050602
  2. MOXIFLOXACIN [Suspect]
     Indication: PNEUMONIA
     Dosage: 400MG DAILY ORAL
     Route: 048
     Dates: start: 20050530, end: 20050609
  3. BENAZEPRIL HCL [Concomitant]
  4. LASIX [Concomitant]
  5. ALBUTEROL [Concomitant]
  6. FLOVENT [Concomitant]

REACTIONS (4)
  - DRUG INTERACTION [None]
  - EPISTAXIS [None]
  - INTERNATIONAL NORMALISED RATIO INCREASED [None]
  - PNEUMONIA [None]
